FAERS Safety Report 14482837 (Version 1)
Quarter: 2018Q1

REPORT INFORMATION
  Report Type: Spontaneous
  Country: US (occurrence: US)
  Receive Date: 20180203
  Receipt Date: 20180203
  Transmission Date: 20180509
  Serious: No
  Sender: FDA-Public Use
  Company Number: US-009507513-1802USA000674

PATIENT
  Sex: Female

DRUGS (3)
  1. ZONEGRAN [Concomitant]
     Active Substance: ZONISAMIDE
     Indication: MIGRAINE
     Dosage: UNK
     Dates: start: 201711
  2. NEXPLANON [Suspect]
     Active Substance: ETONOGESTREL
     Dosage: UNK
     Route: 059
     Dates: start: 201708
  3. ACETAMINOPHEN (+) BUTALBITAL (+) CAFFEINE [Concomitant]
     Indication: MIGRAINE
     Dosage: UNK, PRN (AS NEEDED)
     Dates: start: 201711

REACTIONS (2)
  - Amenorrhoea [Recovered/Resolved]
  - Contraindicated product administered [Unknown]

NARRATIVE: CASE EVENT DATE: 2017
